FAERS Safety Report 11078969 (Version 1)
Quarter: 2015Q2

REPORT INFORMATION
  Report Type: Spontaneous
  Country: US (occurrence: None)
  Receive Date: 20150429
  Receipt Date: 20150429
  Transmission Date: 20150821
  Serious: Yes (Other)
  Sender: FDA-Public Use
  Company Number: None

PATIENT
  Sex: Female

DRUGS (5)
  1. SABRIL [Suspect]
     Active Substance: VIGABATRIN
     Indication: MUSCLE SPASMS
     Dosage: 500MG, TWICE DAILY, ORAL
     Route: 048
     Dates: start: 20150329
  2. RANITIDINE [Concomitant]
     Active Substance: RANITIDINE\RANITIDINE HYDROCHLORIDE
  3. CLONAZEPAM. [Concomitant]
     Active Substance: CLONAZEPAM
  4. PREDNISOLONE. [Concomitant]
     Active Substance: PREDNISOLONE
  5. GENERLAC [Concomitant]
     Active Substance: LACTULOSE

REACTIONS (2)
  - Condition aggravated [None]
  - Seizure [None]
